FAERS Safety Report 5297310-5 (Version None)
Quarter: 2007Q2

REPORT INFORMATION
  Report Type: 
  Country: None (occurrence: None)
  Receive Date: 20070416
  Receipt Date: 20070409
  Transmission Date: 20071010
  Serious: Yes (Other)
  Sender: FDA-Public Use
  Company Number: US-BAYER-200710129BWH

PATIENT
  Age: 53 Year
  Sex: Male

DRUGS (2)
  1. AVELOX [Suspect]
     Indication: SINUSITIS
     Route: 048
     Dates: start: 20040128, end: 20040130
  2. AMANTADINE HCL [Concomitant]
     Indication: INFLUENZA

REACTIONS (2)
  - CONVULSION [None]
  - JAW FRACTURE [None]
